FAERS Safety Report 8775114 (Version 2)
Quarter: 2013Q2

REPORT INFORMATION
  Report Type: Report from Study
  Country: JP (occurrence: JP)
  Receive Date: 20120910
  Receipt Date: 20130403
  Transmission Date: 20140414
  Serious: Yes (Hospitalization)
  Sender: FDA-Public Use
  Company Number: JP-VERTEX PHARMACEUTICAL INC.-AE-2012-009241

PATIENT
  Age: 50 Year
  Sex: Male

DRUGS (16)
  1. VX-950 (TELAPREVIR) [Suspect]
     Indication: CHRONIC HEPATITIS C
     Dosage: 2250 MG, QD
     Route: 048
     Dates: start: 20120530, end: 20120604
  2. VX-950 (TELAPREVIR) [Suspect]
     Dosage: 750 MG, QD
     Route: 048
     Dates: start: 20120619, end: 20120723
  3. VX-950 (TELAPREVIR) [Suspect]
     Dosage: 1250 MG, QD
     Route: 048
     Dates: start: 20120724, end: 20120814
  4. VX-950 (TELAPREVIR) [Suspect]
     Dosage: 1500 MG, QD
     Route: 048
     Dates: start: 20120815, end: 20120828
  5. REBETOL [Suspect]
     Indication: CHRONIC HEPATITIS C
     Dosage: 800 MG, QD
     Route: 048
     Dates: start: 20120530, end: 20120604
  6. REBETOL [Suspect]
     Dosage: 600 MG, QD
     Route: 048
     Dates: start: 20120619, end: 20120723
  7. REBETOL [Suspect]
     Dosage: 400 MG, QD
     Route: 048
     Dates: start: 20120724, end: 20120814
  8. REBETOL [Suspect]
     Dosage: 600 MG, QD
     Route: 048
     Dates: start: 20120815
  9. REBETOL [Suspect]
     Dosage: 600 MG, QD
     Route: 048
     Dates: start: 20120828, end: 20121121
  10. PEGINTERFERON ALFA-2B [Suspect]
     Indication: CHRONIC HEPATITIS C
     Dosage: 1.5 ?G/KG, QW
     Route: 058
     Dates: start: 20120530, end: 20121121
  11. OLMETEC [Concomitant]
     Dosage: 20 MG, QD
     Route: 048
  12. ALTAT [Concomitant]
     Dosage: 150 MG, QD
     Route: 048
  13. HARNAL [Concomitant]
     Dosage: 0.2 MG, QD
     Route: 048
     Dates: start: 20120620
  14. ZYLORIC [Concomitant]
     Dosage: 200 MG, QD
     Route: 048
     Dates: start: 20120530, end: 20120924
  15. PROMAC [Concomitant]
     Dosage: 150 MG, QD
     Route: 048
     Dates: start: 20120530, end: 20121121
  16. CALONAL [Concomitant]
     Dosage: 200 MG, QD/PRN
     Route: 048
     Dates: start: 20120828

REACTIONS (1)
  - Blood creatinine increased [Recovered/Resolved]
